FAERS Safety Report 9596928 (Version 2)
Quarter: 2013Q4

REPORT INFORMATION
  Report Type: Spontaneous
  Country: US (occurrence: US)
  Receive Date: 20131004
  Receipt Date: 20131004
  Transmission Date: 20140711
  Serious: Yes (Hospitalization)
  Sender: FDA-Public Use
  Company Number: US-EXELIXIS-CABO-13003122

PATIENT
  Age: 66 Year
  Sex: Female

DRUGS (12)
  1. COMETRIQ [Suspect]
     Indication: THYROID CANCER
     Dosage: 100 MG, QD
     Route: 048
     Dates: start: 2013, end: 2013
  2. COMETRIQ [Suspect]
     Dosage: 60 MG, QD
     Route: 048
     Dates: start: 20130709, end: 20130808
  3. SYNTHROID [Concomitant]
  4. LOMOTIL [Concomitant]
  5. XGEVA [Concomitant]
  6. IMODIUM [Concomitant]
  7. CALCIUM [Concomitant]
  8. VITAMIN D3 [Concomitant]
  9. MULTIVITAMIN [Concomitant]
  10. FENTANYL [Concomitant]
  11. IBUPROFEN [Concomitant]
  12. VITAMIN B12 [Concomitant]

REACTIONS (4)
  - Lymphoedema [Not Recovered/Not Resolved]
  - Arthralgia [Unknown]
  - Hypoaesthesia [Unknown]
  - Paraesthesia [Unknown]
